FAERS Safety Report 16675904 (Version 1)
Quarter: 2019Q3

REPORT INFORMATION
  Report Type: Spontaneous
  Country: FR (occurrence: FR)
  Receive Date: 20190807
  Receipt Date: 20190807
  Transmission Date: 20191004
  Serious: Yes (Life-Threatening, Other)
  Sender: FDA-Public Use
  Company Number: FR-AUROBINDO-AUR-APL-2019-045516

PATIENT

DRUGS (6)
  1. CARBOPLATIN. [Suspect]
     Active Substance: CARBOPLATIN
     Indication: BRONCHIAL CARCINOMA
     Dosage: 240 MILLIGRAM, EVERY WEEK
     Route: 041
     Dates: start: 20190506
  2. PYOSTACINE [Suspect]
     Active Substance: PRISTINAMYCIN
     Indication: DERMO-HYPODERMITIS
     Dosage: 1 GRAM, ONCE A DAY
     Route: 048
     Dates: start: 20190506
  3. ROCEPHINE [Suspect]
     Active Substance: CEFTRIAXONE SODIUM
     Indication: ANTIBIOTIC THERAPY
     Dosage: UNK
     Route: 041
     Dates: start: 20190419
  4. CIFLOX [Suspect]
     Active Substance: CIPROFLOXACIN
     Indication: ANTIBIOTIC THERAPY
     Dosage: 400 MILLIGRAM, ONCE A DAY
     Route: 041
     Dates: start: 20190422
  5. CIFLOX [Suspect]
     Active Substance: CIPROFLOXACIN
     Dosage: 1000 MILLIGRAM, ONCE A DAY
     Route: 048
     Dates: start: 20190502
  6. PACLITAXEL. [Suspect]
     Active Substance: PACLITAXEL
     Indication: BRONCHIAL CARCINOMA
     Dosage: 240 MILLIGRAM, EVERY WEEK
     Route: 041
     Dates: start: 20190506

REACTIONS (2)
  - Rash erythematous [Recovering/Resolving]
  - Toxic epidermal necrolysis [Recovering/Resolving]

NARRATIVE: CASE EVENT DATE: 20190422
